FAERS Safety Report 12469039 (Version 1)
Quarter: 2016Q2

REPORT INFORMATION
  Report Type: Spontaneous
  Country: US (occurrence: US)
  Receive Date: 20160615
  Receipt Date: 20160615
  Transmission Date: 20160815
  Serious: No
  Sender: FDA-Public Use
  Company Number: US-PFIZER INC-2016275652

PATIENT
  Age: 54 Year
  Sex: Male
  Weight: 104 kg

DRUGS (1)
  1. GABAPENTIN. [Suspect]
     Active Substance: GABAPENTIN
     Dosage: UNK (1 PILL WITH WATER)

REACTIONS (6)
  - Intentional product misuse [Unknown]
  - Anger [Unknown]
  - Thinking abnormal [Unknown]
  - Mood altered [Unknown]
  - Abnormal behaviour [Unknown]
  - Self-injurious ideation [Unknown]
